FAERS Safety Report 5318076-6 (Version None)
Quarter: 2007Q1

REPORT INFORMATION
  Report Type: 
  Country: None (occurrence: None)
  Receive Date: 20070201
  Receipt Date: 20060221
  Transmission Date: 20070707
  Serious: Yes (Hospitalization, Other)
  Sender: FDA-Public Use
  Company Number: MEDI-0004216

PATIENT
  Age: 59 Year
  Sex: Female
  Weight: 95.709 kg

DRUGS (10)
  1. ETHYOL [Suspect]
     Indication: CHEMOTHERAPY
     Dosage: 5 IN 1 WK, SUBCUTANEOUS
     Route: 058
     Dates: start: 20060130, end: 20060220
  2. ETHYOL [Suspect]
     Indication: RADIOTHERAPY
     Dosage: 5 IN 1 WK, SUBCUTANEOUS
     Route: 058
     Dates: start: 20060130, end: 20060220
  3. UNSPECIFIED CHEMOTHERAPEUTIC AGENT [Concomitant]
  4. RADIATION THERAPY [Concomitant]
  5. CARDIZEM [Concomitant]
  6. UNSPECIFIED DIURETIC [Concomitant]
  7. NYSTATIN [Concomitant]
  8. BENADRYL [Concomitant]
  9. MAALOX (MAGNESIUM HYDROXIDE, ALUMINIUM HYDROXIDE GEL) [Concomitant]
  10. LIDOCAINE [Concomitant]

REACTIONS (6)
  - ANAPHYLACTIC REACTION [None]
  - DYSPNOEA [None]
  - NAUSEA [None]
  - PRURITUS [None]
  - URTICARIA [None]
  - WHEEZING [None]
